FAERS Safety Report 9137141 (Version 2)
Quarter: 2013Q2

REPORT INFORMATION
  Report Type: Spontaneous
  Country: US (occurrence: US)
  Receive Date: 20130304
  Receipt Date: 20130418
  Transmission Date: 20140414
  Serious: No
  Sender: FDA-Public Use
  Company Number: US-PFIZER INC-2013074528

PATIENT
  Age: 60 Year
  Sex: Female
  Weight: 111 kg

DRUGS (12)
  1. PRISTIQ [Suspect]
     Indication: ANXIETY
     Dosage: 50 MG, 1X/DAY
     Route: 048
     Dates: start: 2006, end: 201212
  2. PRISTIQ [Suspect]
     Indication: PANIC ATTACK
  3. PRISTIQ [Suspect]
     Indication: DEPRESSION
  4. HYDROCODONE [Concomitant]
     Indication: PAIN
     Dosage: 5 MG, UNK
     Route: 048
  5. AMBIEN [Concomitant]
     Indication: INSOMNIA
     Dosage: 5 MG, 1X/DAY
     Route: 048
  6. AMBIEN [Concomitant]
     Dosage: 10 MG, 1 HS
  7. PRO AIR HFA [Concomitant]
     Dosage: 2 PUFFS, 4X/DAY
  8. VITAMIN D [Concomitant]
     Dosage: 50000 UNITS, WEEKLY
  9. VICODIN [Concomitant]
     Dosage: 5/325 MG, 4X/DAY PRN
  10. LISINOPRIL [Concomitant]
     Dosage: 10/12.5 MG, 1X/DAY
  11. OMEPRAZOLE [Concomitant]
     Dosage: 20 MG, 1X/DAY
  12. VALIUM [Concomitant]
     Dosage: 5 MG, 6 PRN

REACTIONS (4)
  - Withdrawal syndrome [Unknown]
  - Hypertension [Unknown]
  - Disturbance in attention [Unknown]
  - Malaise [Unknown]
